FAERS Safety Report 21156854 (Version 1)
Quarter: 2022Q3

REPORT INFORMATION
  Report Type: Spontaneous
  Country: US (occurrence: None)
  Receive Date: 20220730
  Receipt Date: 20220730
  Transmission Date: 20221027
  Serious: Yes (Other)
  Sender: FDA-Public Use
  Company Number: None

PATIENT
  Age: 63 Year
  Sex: Female
  Weight: 76.05 kg

DRUGS (4)
  1. BANANA BOAT (AVOBENZONE\HOMOSALATE\OCTOCRYLENE) [Suspect]
     Active Substance: AVOBENZONE\HOMOSALATE\OCTOCRYLENE
     Indication: Prophylaxis against solar radiation
     Dosage: OTHER QUANTITY : 1 SPRAY(S);?FREQUENCY : AS NEEDED;?
     Route: 061
     Dates: start: 20220608, end: 20220730
  2. SIMPONI ARIA [Concomitant]
     Active Substance: GOLIMUMAB
  3. VITAMINS [Concomitant]
     Active Substance: VITAMINS
  4. additional vitamins: B, C, and D [Concomitant]

REACTIONS (2)
  - Migraine [None]
  - Recalled product administered [None]

NARRATIVE: CASE EVENT DATE: 20220608
